FAERS Safety Report 19254933 (Version 4)
Quarter: 2021Q2

REPORT INFORMATION
  Report Type: Spontaneous
  Country: BE (occurrence: BE)
  Receive Date: 20210513
  Receipt Date: 20210625
  Transmission Date: 20210717
  Serious: Yes (Life-Threatening, Hospitalization, Congenital Anomaly, Other)
  Sender: FDA-Public Use
  Company Number: BE-AUROBINDO-AUR-APL-2021-019541

PATIENT
  Age: 25 Year
  Sex: Female

DRUGS (6)
  1. OXYCODONE [Suspect]
     Active Substance: OXYCODONE
     Indication: ANALGESIC THERAPY
     Dosage: 5 MILLIGRAM
     Route: 048
  2. PIRITRAMIDE [Suspect]
     Active Substance: PIRITRAMIDE
     Indication: ANALGESIC THERAPY
     Dosage: 20 MILLIGRAM
     Route: 042
  3. ACETYLCYSTEINE. [Suspect]
     Active Substance: ACETYLCYSTEINE
     Indication: TOXICITY TO VARIOUS AGENTS
     Dosage: UNK
     Route: 065
  4. PARACETAMOL [Suspect]
     Active Substance: ACETAMINOPHEN
     Indication: ANALGESIC THERAPY
     Dosage: UNK
     Route: 065
  5. PARACETAMOL [Suspect]
     Active Substance: ACETAMINOPHEN
     Indication: PAIN
  6. TRAMADOL HYDROCHLORIDE. [Suspect]
     Active Substance: TRAMADOL HYDROCHLORIDE
     Indication: ANALGESIC THERAPY
     Dosage: 100 MILLIGRAM
     Route: 048

REACTIONS (10)
  - Hypercapnia [Recovered/Resolved]
  - Loss of consciousness [Recovered/Resolved]
  - Pneumonia aspiration [Recovered/Resolved]
  - Congenital central hypoventilation syndrome [Recovering/Resolving]
  - Adverse drug reaction [Unknown]
  - Generalised tonic-clonic seizure [Recovered/Resolved]
  - Respiratory failure [Recovered/Resolved]
  - Hypoventilation [Recovered/Resolved]
  - Ammonia increased [Recovered/Resolved]
  - Hypoxia [Recovered/Resolved]
